FAERS Safety Report 9532010 (Version 1)
Quarter: 2013Q2

REPORT INFORMATION
  Report Type: Spontaneous
  Country: JP (occurrence: None)
  Receive Date: 20130403
  Receipt Date: 20130403
  Transmission Date: 20140414
  Serious: Yes (Hospitalization)
  Sender: FDA-Public Use
  Company Number: US-2012-10488

PATIENT
  Age: 3 Year
  Sex: Male

DRUGS (7)
  1. BUSULFEX [Suspect]
     Indication: ACUTE MYELOID LEUKAEMIA
     Route: 042
     Dates: start: 20111005, end: 20111008
  2. CYCLOPHOSPHAMIDE (CYCLOPHOSPHAMIDE) [Suspect]
     Indication: ACUTE MYELOID LEUKAEMIA
     Dosage: 30 MG/KG, X 3 (DAY -4 TO DAY -2) INTRAVENOUS
     Dates: start: 20111005
  3. ANTILYMPHOCYTE IMMUNOGLOBULIN (HORSE) [Suspect]
     Indication: ACUTE MYELOID LEUKAEMIA
     Dosage: 0.5-2.5 MG/KG X 4 (FROM DAY-8 TO DAY-5), INTRAVENOUS
     Dates: start: 20111005
  4. PROGRAF (TACROLIMUS) [Concomitant]
  5. METHOTREXATE (METHOTREXATE) [Concomitant]
  6. FLUDARA (FLUDARABINE PHOSPHATE) [Concomitant]
  7. ANTI-HBS HUMAN IMMUNE GLOBULIN [Concomitant]

REACTIONS (1)
  - Venoocclusive liver disease [None]
